FAERS Safety Report 7206655-0 (Version None)
Quarter: 2011Q1

REPORT INFORMATION
  Report Type: 
  Country: None (occurrence: None)
  Receive Date: 20110103
  Receipt Date: 20101223
  Transmission Date: 20110831
  Serious: Yes (Other)
  Sender: FDA-Public Use
  Company Number: CN-JNJFOC-20101208087

PATIENT
  Age: 32 Year
  Sex: Female

DRUGS (2)
  1. SPORANOX [Suspect]
     Indication: ONYCHOMYCOSIS
     Route: 048
  2. CHINESE MEDICATION [Suspect]
     Indication: ONYCHOMYCOSIS
     Route: 065

REACTIONS (3)
  - SELF-MEDICATION [None]
  - RASH [None]
  - SKIN HAEMORRHAGE [None]
